FAERS Safety Report 11490864 (Version 1)
Quarter: 2015Q3

REPORT INFORMATION
  Report Type: Spontaneous
  Country: DK (occurrence: DK)
  Receive Date: 20150910
  Receipt Date: 20150910
  Transmission Date: 20151125
  Serious: Yes (Hospitalization)
  Sender: FDA-Public Use
  Company Number: DK-PFIZER INC-2014264512

PATIENT
  Age: 75 Year
  Sex: Male

DRUGS (9)
  1. AMLODIPIN ACTAVIS /00972402/ [Concomitant]
     Indication: HYPERTENSION
  2. PINEX [Concomitant]
     Active Substance: ACETAMINOPHEN
  3. CARDOZIN RETARD [Concomitant]
     Indication: HYPERTENSION
  4. TOILAX [Concomitant]
     Indication: CONSTIPATION
  5. ZYVOXID [Suspect]
     Active Substance: LINEZOLID
     Indication: WOUND INFECTION STAPHYLOCOCCAL
     Dosage: 600 MG, 2X/DAY
     Route: 048
     Dates: start: 20140805, end: 20140916
  6. ALLOPURINOL. [Concomitant]
     Active Substance: ALLOPURINOL
     Indication: GOUTY ARTHRITIS
  7. METOPROLOLSUCCINAT [Concomitant]
     Active Substance: METOPROLOL SUCCINATE
     Indication: HYPERTENSION
  8. PANTOPRAZOL ^ACTAVIS^ [Concomitant]
  9. MAGNESIA ^DAK^ [Concomitant]
     Indication: CONSTIPATION

REACTIONS (2)
  - Anaemia [Not Recovered/Not Resolved]
  - Sepsis [Recovered/Resolved]

NARRATIVE: CASE EVENT DATE: 201410
